FAERS Safety Report 8311339-1 (Version None)
Quarter: 2012Q2

REPORT INFORMATION
  Report Type: 
  Country: None (occurrence: None)
  Receive Date: 20120425
  Receipt Date: 20120411
  Transmission Date: 20120825
  Serious: Yes (Hospitalization)
  Sender: FDA-Public Use
  Company Number: IT-GLAXOSMITHKLINE-B0797086A

PATIENT
  Sex: Male
  Weight: 75 kg

DRUGS (3)
  1. FENTANYL [Concomitant]
     Indication: CANCER PAIN
     Dosage: 150MG EVERY 3 DAYS
  2. HEPARIN [Concomitant]
     Indication: THROMBOSIS PROPHYLAXIS
  3. VOTRIENT [Suspect]
     Indication: TRANSITIONAL CELL CANCER OF THE RENAL PELVIS AND URETER

REACTIONS (1)
  - VAGINAL FISTULA [None]
